FAERS Safety Report 4668462-2 (Version None)
Quarter: 2005Q2

REPORT INFORMATION
  Report Type: 
  Country: None (occurrence: None)
  Receive Date: 20050519
  Receipt Date: 20050516
  Transmission Date: 20051028
  Serious: Yes (Death, Hospitalization)
  Sender: FDA-Public Use
  Company Number: 200510803BWH

PATIENT
  Age: 72 Year
  Sex: Male

DRUGS (10)
  1. DTIC-DOME [Suspect]
     Indication: MALIGNANT MELANOMA
     Dosage: 2210 MG, ONCE, INTRAVENOUS
     Route: 042
     Dates: start: 20030203
  2. G3139 (UNCODEABLE ^UNCLASSIFIABLE^) [Suspect]
     Indication: MALIGNANT MELANOMA
     Dosage: 765 MG, QD, INTRAVENOUS
     Route: 042
     Dates: start: 20030115, end: 20030120
  3. G3139 (UNCODEABLE ^UNCLASSIFIABLE^) [Suspect]
     Indication: MALIGNANT MELANOMA
     Dosage: 765 MG, QD, INTRAVENOUS
     Route: 042
     Dates: start: 20030129, end: 20030203
  4. FUROSEMIDE [Concomitant]
  5. PROCHLORPERAZINE [Concomitant]
  6. CANDESARTAN [Concomitant]
  7. ENOXAPARIN SODIUM [Concomitant]
  8. ALBUTEROL [Concomitant]
  9. ZOLPIDEM [Concomitant]
  10. OXYGEN [Concomitant]

REACTIONS (19)
  - ASPARTATE AMINOTRANSFERASE INCREASED [None]
  - ATELECTASIS [None]
  - BLOOD CREATININE INCREASED [None]
  - BLOOD UREA INCREASED [None]
  - CULTURE URINE POSITIVE [None]
  - DISEASE RECURRENCE [None]
  - ENTEROCOCCAL INFECTION [None]
  - FEBRILE NEUTROPENIA [None]
  - GENERAL PHYSICAL HEALTH DETERIORATION [None]
  - HAEMATOCRIT DECREASED [None]
  - HAEMOGLOBIN DECREASED [None]
  - IMMUNE SYSTEM DISORDER [None]
  - INTERNATIONAL NORMALISED RATIO INCREASED [None]
  - PLATELET COUNT DECREASED [None]
  - PLATELET COUNT INCREASED [None]
  - PLEURAL EFFUSION [None]
  - PROTHROMBIN TIME PROLONGED [None]
  - PULMONARY EMBOLISM [None]
  - WHITE BLOOD CELL COUNT DECREASED [None]
